FAERS Safety Report 24237292 (Version 1)
Quarter: 2024Q3

REPORT INFORMATION
  Report Type: Other
  Country: TR (occurrence: TR)
  Receive Date: 20240822
  Receipt Date: 20240822
  Transmission Date: 20241016
  Serious: Yes (Life-Threatening)
  Sender: B BRAUN
  Company Number: TR-B.Braun Medical Inc.-2160695

PATIENT
  Age: 67 Year
  Sex: Male

DRUGS (7)
  1. DEXTROSE\LIDOCAINE HYDROCHLORIDE [Suspect]
     Active Substance: DEXTROSE\LIDOCAINE HYDROCHLORIDE
     Indication: Ventricular tachycardia
     Route: 042
  2. MAGNESIUM [Suspect]
     Active Substance: MAGNESIUM
  3. SPIRONOLACTONE [Concomitant]
     Active Substance: SPIRONOLACTONE
  4. VALSARTAN [Concomitant]
     Active Substance: VALSARTAN
  5. SACUBITRIL [Concomitant]
     Active Substance: SACUBITRIL
  6. BISOPROLOL. [Concomitant]
     Active Substance: BISOPROLOL FUMARATE
  7. AMIODARONE [Suspect]
     Active Substance: AMIODARONE

REACTIONS (1)
  - Drug ineffective [Unknown]
